FAERS Safety Report 8565298-7 (Version None)
Quarter: 2012Q3

REPORT INFORMATION
  Report Type: 
  Country: None (occurrence: None)
  Receive Date: 20120803
  Receipt Date: 20120606
  Transmission Date: 20120928
  Serious: Yes (Death)
  Sender: FDA-Public Use
  Company Number: FR-ROCHE-1095777

PATIENT
  Sex: Male

DRUGS (6)
  1. FLUOROURACIL [Concomitant]
     Dates: start: 20110725, end: 20111117
  2. LEUCOVORIN CALCIUM [Concomitant]
     Dates: start: 20110725, end: 20111017
  3. LEUCOVORIN CALCIUM [Concomitant]
     Dates: start: 20090706, end: 20091124
  4. AVASTIN [Suspect]
     Indication: PRODUCT USED FOR UNKNOWN INDICATION
     Dosage: 7 COURSES
     Dates: start: 20110725, end: 20111017
  5. FLUOROURACIL [Concomitant]
     Dates: start: 20090706, end: 20091124
  6. IRINOTECAN HCL [Concomitant]

REACTIONS (1)
  - DISEASE PROGRESSION [None]
